FAERS Safety Report 8300511-2 (Version None)
Quarter: 2012Q2

REPORT INFORMATION
  Report Type: 
  Country: None (occurrence: None)
  Receive Date: 20120420
  Receipt Date: 20120409
  Transmission Date: 20120825
  Serious: Yes (Hospitalization, Other)
  Sender: FDA-Public Use
  Company Number: US-BIOGENIDEC-2011BI023989

PATIENT
  Age: 68 Year
  Sex: Female

DRUGS (30)
  1. ASPIRIN [Concomitant]
     Route: 048
  2. LISINOPRIL [Concomitant]
     Route: 048
  3. LEXAPRO [Concomitant]
     Route: 048
  4. TYLENOL (CAPLET) [Concomitant]
     Route: 048
  5. TRILEPTAL [Concomitant]
     Route: 048
  6. ARTHRITIS PAIN FORMULA [Concomitant]
     Route: 048
  7. CALCIUM CARBONATE [Concomitant]
     Route: 048
  8. PLAVIX [Concomitant]
     Route: 048
  9. PRIMIDONE [Concomitant]
     Route: 048
  10. PEPCID [Concomitant]
     Route: 048
  11. MIRALAX [Concomitant]
     Route: 048
  12. TYSABRI [Suspect]
     Indication: MULTIPLE SCLEROSIS
     Route: 042
     Dates: start: 20080411, end: 20110506
  13. ALBUTEROL [Concomitant]
     Route: 055
  14. METOPROLOL TARTRATE [Concomitant]
     Route: 048
  15. PRIMIDONE [Concomitant]
     Route: 048
  16. FERROUS SULFATE TAB [Concomitant]
     Route: 048
  17. ADVAIR DISKUS 100/50 [Concomitant]
     Route: 055
  18. MIDODRINE HYDROCLORIDE [Concomitant]
     Route: 048
  19. VITAMIN D [Concomitant]
     Route: 048
  20. SEROQUEL [Concomitant]
     Route: 048
  21. ARICEPT [Concomitant]
     Route: 048
  22. SIMVASTATIN [Concomitant]
     Route: 048
  23. NORCO [Concomitant]
     Route: 048
  24. SUDAFED 12 HOUR [Concomitant]
     Route: 048
  25. FLORINEF [Concomitant]
     Route: 048
  26. TYSABRI [Suspect]
     Route: 042
     Dates: start: 20110923
  27. NASONEX [Concomitant]
     Route: 045
  28. SINGULAIR [Concomitant]
     Route: 048
  29. HYDROXYCHLOROQUINE SULFATE [Concomitant]
     Route: 048
  30. ATIVAN [Concomitant]
     Route: 048

REACTIONS (7)
  - SUBDURAL HAEMATOMA [None]
  - EXTRANODAL MARGINAL ZONE B-CELL LYMPHOMA (MALT TYPE) [None]
  - STATUS EPILEPTICUS [None]
  - URINARY TRACT INFECTION [None]
  - CARDIAC DISORDER [None]
  - FALL [None]
  - MENINGIOMA [None]
